FAERS Safety Report 7996477-5 (Version None)
Quarter: 2011Q4

REPORT INFORMATION
  Report Type: 
  Country: None (occurrence: None)
  Receive Date: 20111220
  Receipt Date: 20111213
  Transmission Date: 20120403
  Serious: Yes (Other)
  Sender: FDA-Public Use
  Company Number: US-ASTRAZENECA-2011SE37653

PATIENT
  Age: 32 Year
  Sex: Male

DRUGS (1)
  1. SEROQUEL [Suspect]
     Route: 048

REACTIONS (5)
  - CRANIOCEREBRAL INJURY [None]
  - VOMITING [None]
  - HYPERHIDROSIS [None]
  - DRUG DOSE OMISSION [None]
  - WITHDRAWAL SYNDROME [None]
